FAERS Safety Report 4700785-0 (Version None)
Quarter: 2005Q2

REPORT INFORMATION
  Report Type: 
  Country: None (occurrence: None)
  Receive Date: 20050624
  Receipt Date: 20050322
  Transmission Date: 20051028
  Serious: Yes (Disabling)
  Sender: FDA-Public Use
  Company Number: 399464

PATIENT
  Sex: Male

DRUGS (3)
  1. XELODA [Suspect]
     Indication: NEOPLASM MALIGNANT
  2. AVASTIN [Suspect]
     Indication: NEOPLASM MALIGNANT
     Dosage: INTRAVENOUS
     Route: 042
  3. ELOXATIN [Suspect]
     Indication: NEOPLASM MALIGNANT
     Dosage: 1 PER 3 WEEK, INTRAVENOUS
     Route: 042

REACTIONS (2)
  - DYSSTASIA [None]
  - MYOPATHY [None]
